FAERS Safety Report 7804116-9 (Version None)
Quarter: 2011Q4

REPORT INFORMATION
  Report Type: 
  Country: None (occurrence: None)
  Receive Date: 20111010
  Receipt Date: 20110930
  Transmission Date: 20120403
  Serious: Yes (Other)
  Sender: FDA-Public Use
  Company Number: FR-ASTELLAS-2011EU003797

PATIENT
  Sex: Male

DRUGS (6)
  1. NERISONE [Concomitant]
     Indication: ASTHMA
     Dosage: UNK
     Route: 065
  2. TACROLIMUS [Suspect]
     Indication: DERMATITIS ATOPIC
     Dosage: 0.03 %, PRN
     Route: 061
     Dates: start: 20091021, end: 20110316
  3. VENTOLIN [Concomitant]
     Indication: ASTHMA
     Dosage: UNK
     Route: 065
  4. DESLORATADINE [Concomitant]
     Indication: ASTHMA
     Dosage: UNK
     Route: 065
  5. LOCOID [Concomitant]
     Indication: ASTHMA
     Dosage: UNK
     Route: 065
  6. SERETIDE [Concomitant]
     Indication: ASTHMA
     Dosage: UNK
     Route: 065

REACTIONS (1)
  - LYMPHADENOPATHY [None]
